FAERS Safety Report 5637388-X (Version None)
Quarter: 2008Q1

REPORT INFORMATION
  Report Type: 
  Country: None (occurrence: None)
  Receive Date: 20080225
  Receipt Date: 20080213
  Transmission Date: 20080703
  Serious: Yes (Other)
  Sender: FDA-Public Use
  Company Number: US-PFIZER INC-2008015225

PATIENT
  Sex: Male

DRUGS (15)
  1. LYRICA [Suspect]
     Indication: HERPES ZOSTER
     Route: 048
  2. LYRICA [Suspect]
     Indication: HYPOAESTHESIA
  3. LYRICA [Suspect]
     Indication: PARAESTHESIA
  4. LYRICA [Suspect]
     Indication: PAIN IN EXTREMITY
  5. LORTAB [Concomitant]
     Route: 048
  6. NAPROSYN [Concomitant]
     Route: 048
  7. ZETIA [Concomitant]
  8. METOPROLOL TARTRATE [Concomitant]
     Route: 048
  9. FUROSEMIDE [Concomitant]
     Route: 048
  10. LEVOTHYROXINE SODIUM [Concomitant]
     Route: 048
  11. HYDROCHLOROTHIAZIDE [Concomitant]
  12. OMEPRAZOLE [Concomitant]
  13. ASPIRIN [Concomitant]
     Dosage: DAILY DOSE:81MG
  14. CIPROFLOXACIN [Concomitant]
  15. CARDIOVASCULAR SYSTEM DRUGS [Concomitant]

REACTIONS (4)
  - BLOOD PRESSURE ABNORMAL [None]
  - GLAUCOMA [None]
  - OEDEMA PERIPHERAL [None]
  - WEIGHT INCREASED [None]
